FAERS Safety Report 8702372 (Version 2)
Quarter: 2012Q4

REPORT INFORMATION
  Report Type: 
  Country: US (occurrence: US)
  Receive Date: 20120803
  Receipt Date: 20121005
  Transmission Date: 20130627
  Serious: No
  Sender: FDA-Public Use
  Company Number: US-ASTRAZENECA-2012SE50791

PATIENT
  Age: 66 Year
  Sex: Female
  Weight: 99.8 kg

DRUGS (8)
  1. SYMBICORT [Suspect]
     Dosage: 160/4.5, TWO PUFFS BID
     Route: 055
  2. GLUCOPHAGE [Concomitant]
  3. METFORMIN [Concomitant]
  4. GLYBURIDE [Concomitant]
  5. LEVOXYL [Concomitant]
  6. ONGLYZA [Concomitant]
  7. LOSARTEN [Concomitant]
  8. DILTIAZEM [Concomitant]

REACTIONS (2)
  - Oropharyngeal pain [Unknown]
  - Off label use [Unknown]
